FAERS Safety Report 22284472 (Version 2)
Quarter: 2023Q2

REPORT INFORMATION
  Report Type: Spontaneous
  Country: US (occurrence: US)
  Receive Date: 20230504
  Receipt Date: 20230511
  Transmission Date: 20230722
  Serious: No
  Sender: FDA-Public Use
  Company Number: US-002147023-NVSC2023US094216

PATIENT
  Sex: Male

DRUGS (16)
  1. AIMOVIG [Suspect]
     Active Substance: ERENUMAB-AOOE
     Indication: Product used for unknown indication
     Dosage: 140 MG
     Route: 065
  2. NEURONTIN [Suspect]
     Active Substance: GABAPENTIN
     Indication: Neuralgia
     Dosage: 1 DOSAGE FORM, TID (BY MOUTH)
     Route: 048
  3. ZYLOPRIM [Concomitant]
     Active Substance: ALLOPURINOL
     Indication: Product used for unknown indication
     Dosage: 1 DOSAGE FORM, QD (BY MOUTH)
     Route: 048
  4. NORVASC [Concomitant]
     Active Substance: AMLODIPINE BESYLATE
     Indication: Hypertension
     Dosage: 1 DOSAGE FORM, QD (BY MOUTH)
     Route: 048
  5. Alcohol swabs [Concomitant]
     Indication: Product used for unknown indication
     Dosage: UNK (NEW SWAB EVERY 7 DAYS FOR USE PRIOR TO  MEDICATION ADMINISTRATION)
     Route: 061
  6. MYRBETRIQ [Concomitant]
     Active Substance: MIRABEGRON
     Indication: Micturition urgency
     Dosage: 1 DOSAGE FORM, QD (25MG 24 HR) (BY MOUTH)
     Route: 048
  7. COLCRYS [Concomitant]
     Active Substance: COLCHICINE
     Indication: Gout
     Dosage: 1 DOSAGE FORM, QD (BY MOUTH)
     Route: 048
  8. TRULICITY [Concomitant]
     Active Substance: DULAGLUTIDE
     Indication: Diabetes mellitus
     Dosage: 1 DOSAGE FORM (0.75 MG/0.5ML) (INTO SKIN EVERY 7 DAYS)
  9. DRISDOL [Concomitant]
     Active Substance: ERGOCALCIFEROL
     Indication: Product used for unknown indication
     Dosage: 1 DOSAGE FORM, QW (50,000 UNIT) (BY MOUTH)
     Route: 048
  10. ZETIA [Concomitant]
     Active Substance: EZETIMIBE
     Indication: Product used for unknown indication
     Dosage: 1 DOSAGE FORM, QD (BY MOUTH)
     Route: 048
  11. SYNTHROID [Concomitant]
     Active Substance: LEVOTHYROXINE SODIUM
     Indication: Product used for unknown indication
     Dosage: 1 DOSAGE FORM, QD (50 MCG) (BY MOUTH)
     Route: 048
  12. XARELTO [Concomitant]
     Active Substance: RIVAROXABAN
     Indication: Embolism
     Dosage: 1 DOSAGE FORM, QD (BY MOUTH)
     Route: 048
  13. CRESTOR [Concomitant]
     Active Substance: ROSUVASTATIN CALCIUM
     Indication: Product used for unknown indication
     Dosage: 1 DOSAGE FORM, QD (BY MOUTH)
     Route: 048
  14. DIOVAN [Concomitant]
     Active Substance: VALSARTAN
     Indication: Hypertensive heart disease
     Dosage: 1 DOSAGE FORM, QD (BY MOUTH)
     Route: 048
  15. RIMEGEPANT [Concomitant]
     Active Substance: RIMEGEPANT
     Indication: Migraine prophylaxis
     Dosage: 1 DOSAGE FORM, QOD (DISINTEGRATING TABLET)
     Route: 065
  16. RIMEGEPANT [Concomitant]
     Active Substance: RIMEGEPANT
     Dosage: 75 MG/24 HRS, PRN (PREVIOUSLY)
     Route: 065

REACTIONS (11)
  - Migraine [Unknown]
  - Headache [Unknown]
  - Vertigo [Unknown]
  - Back pain [Unknown]
  - Burning sensation [Unknown]
  - Pain [Unknown]
  - Hypoaesthesia [Unknown]
  - Paraesthesia [Unknown]
  - Neck pain [Unknown]
  - Hyporeflexia [Unknown]
  - Drug ineffective [Unknown]
